FAERS Safety Report 12453073 (Version 1)
Quarter: 2016Q2

REPORT INFORMATION
  Report Type: Spontaneous
  Country: BR (occurrence: BR)
  Receive Date: 20160609
  Receipt Date: 20160609
  Transmission Date: 20160815
  Serious: Yes (Other)
  Sender: FDA-Public Use
  Company Number: PHHY2016BR077541

PATIENT
  Age: 53 Year
  Sex: Male

DRUGS (5)
  1. PERIVASC                           /01026201/ [Concomitant]
     Indication: PRODUCT USED FOR UNKNOWN INDICATION
     Route: 065
  2. VITAMIN E [Suspect]
     Active Substance: .ALPHA.-TOCOPHEROL
     Indication: VASCULAR CALCIFICATION
     Route: 065
     Dates: start: 201602
  3. MAREVAN [Concomitant]
     Active Substance: WARFARIN SODIUM
     Indication: PRODUCT USED FOR UNKNOWN INDICATION
     Route: 065
  4. AAS [Concomitant]
     Active Substance: ASPIRIN
     Indication: PRODUCT USED FOR UNKNOWN INDICATION
     Route: 065
  5. VITAMIN E [Suspect]
     Active Substance: .ALPHA.-TOCOPHEROL
     Indication: HYPOVITAMINOSIS

REACTIONS (2)
  - Intestinal haemorrhage [Unknown]
  - Mouth haemorrhage [Unknown]

NARRATIVE: CASE EVENT DATE: 20160522
